FAERS Safety Report 13581461 (Version 1)
Quarter: 2017Q2

REPORT INFORMATION
  Report Type: Spontaneous
  Country: US (occurrence: US)
  Receive Date: 20170525
  Receipt Date: 20170525
  Transmission Date: 20170830
  Serious: Yes (Hospitalization, Disabling, Other)
  Sender: FDA-Public Use
  Company Number: US-GLAXOSMITHKLINE-US2017076761

PATIENT
  Age: 49 Year
  Sex: Female

DRUGS (4)
  1. LAMICTAL [Suspect]
     Active Substance: LAMOTRIGINE
     Indication: DEPRESSION
     Dosage: UNK UNK, QD
     Dates: start: 200706, end: 20070824
  2. LOESTRIN 21 [Concomitant]
     Dosage: UNK
     Dates: end: 20070824
  3. EFFEXOR XR [Concomitant]
     Active Substance: VENLAFAXINE HYDROCHLORIDE
     Indication: DEPRESSION
     Dosage: UNK
     Dates: end: 20070824
  4. ACCUPRIL [Concomitant]
     Active Substance: QUINAPRIL HYDROCHLORIDE
     Dosage: UNK
     Dates: end: 20070824

REACTIONS (8)
  - Pancreatectomy [Unknown]
  - Pancreatitis acute [Recovered/Resolved]
  - Pancreatic necrosis [Unknown]
  - Back pain [Unknown]
  - Diabetes mellitus [Unknown]
  - Pain [Unknown]
  - Breast pain [Unknown]
  - Disability [Unknown]

NARRATIVE: CASE EVENT DATE: 20070824
